FAERS Safety Report 11636246 (Version 1)
Quarter: 2015Q4

REPORT INFORMATION
  Report Type: Spontaneous
  Country: US (occurrence: US)
  Receive Date: 20151016
  Receipt Date: 20151016
  Transmission Date: 20160304
  Serious: No
  Sender: FDA-Public Use
  Company Number: US-WEST-WARD PHARMACEUTICALS CORP.-US-H14001-14-01651

PATIENT
  Sex: Male

DRUGS (2)
  1. PROMETHAZINE HCI INJECTION USP [Suspect]
     Active Substance: PROMETHAZINE HYDROCHLORIDE
     Indication: NAUSEA
     Route: 042
     Dates: start: 20141028
  2. PROMETHAZINE HCI INJECTION USP [Suspect]
     Active Substance: PROMETHAZINE HYDROCHLORIDE
     Indication: VOMITING

REACTIONS (3)
  - Drug ineffective [Unknown]
  - Product tampering [Unknown]
  - Product packaging quantity issue [None]

NARRATIVE: CASE EVENT DATE: 2014
